FAERS Safety Report 22218585 (Version 2)
Quarter: 2023Q2

REPORT INFORMATION
  Report Type: Spontaneous
  Country: GB (occurrence: GB)
  Receive Date: 20230417
  Receipt Date: 20230630
  Transmission Date: 20230721
  Serious: Yes (Hospitalization)
  Sender: FDA-Public Use
  Company Number: GB-VERTEX PHARMACEUTICALS-2023-005353

PATIENT
  Sex: Female

DRUGS (9)
  1. ELEXACAFTOR\IVACAFTOR\TEZACAFTOR [Suspect]
     Active Substance: ELEXACAFTOR\IVACAFTOR\TEZACAFTOR
     Indication: Cystic fibrosis
     Dosage: 2 TABS (75MG IVA/50MG TEZA/100MG ELEXA) AM
     Route: 048
     Dates: start: 202001
  2. KALYDECO [Suspect]
     Active Substance: IVACAFTOR
     Indication: Cystic fibrosis
     Dosage: 1 TAB PM
     Route: 048
     Dates: start: 202001
  3. VITAMIN D [Concomitant]
     Active Substance: VITAMIN D NOS
  4. MONTELUKAST [Concomitant]
     Active Substance: MONTELUKAST SODIUM
  5. PHENOTHIAZINE [Concomitant]
     Active Substance: PHENOTHIAZINE
  6. PINDOLOL [Concomitant]
     Active Substance: PINDOLOL
  7. LAMOTRIGINE [Concomitant]
     Active Substance: LAMOTRIGINE
  8. LANSOPRAZOLE [Concomitant]
     Active Substance: LANSOPRAZOLE
  9. AMANTADINE [Concomitant]
     Active Substance: AMANTADINE

REACTIONS (1)
  - Weight increased [Recovered/Resolved]

NARRATIVE: CASE EVENT DATE: 20230410
